FAERS Safety Report 10210415 (Version 1)
Quarter: 2014Q2

REPORT INFORMATION
  Report Type: Spontaneous
  Country: US (occurrence: US)
  Receive Date: 20140602
  Receipt Date: 20140602
  Transmission Date: 20141212
  Serious: No
  Sender: FDA-Public Use
  Company Number: US-009507513-1405USA009871

PATIENT
  Age: 34 Year
  Sex: Female

DRUGS (4)
  1. CLARITIN [Suspect]
     Indication: URTICARIA
     Dosage: UNK, UNKNOWN
     Route: 048
  2. PREDNISONE [Concomitant]
  3. ZYRTEC [Concomitant]
  4. ZANTAC [Concomitant]

REACTIONS (3)
  - Weight increased [Unknown]
  - Stress [Unknown]
  - Drug ineffective [Unknown]
